FAERS Safety Report 9726527 (Version 1)
Quarter: 2013Q4

REPORT INFORMATION
  Report Type: Spontaneous
  Country: BE (occurrence: BE)
  Receive Date: 20131203
  Receipt Date: 20131203
  Transmission Date: 20140711
  Serious: Yes (Hospitalization, Other)
  Sender: FDA-Public Use
  Company Number: BE-ASTELLAS-2013US012429

PATIENT
  Sex: Female

DRUGS (2)
  1. TARCEVA [Suspect]
     Indication: PRODUCT USED FOR UNKNOWN INDICATION
     Dosage: 150 MG, UID/QD
     Route: 065
  2. TARCEVA [Suspect]
     Dosage: 300 MG, UID/QD
     Route: 065

REACTIONS (5)
  - Overdose [Unknown]
  - Abdominal pain [Unknown]
  - Ascites [Unknown]
  - Leukocytosis [Unknown]
  - Chest pain [Unknown]
